FAERS Safety Report 4386603-1 (Version None)
Quarter: 2004Q2

REPORT INFORMATION
  Report Type: 
  Country: None (occurrence: None)
  Receive Date: 20040629
  Receipt Date: 20040628
  Transmission Date: 20050107
  Serious: Yes (Life-Threatening)
  Sender: FDA-Public Use
  Company Number: US-GLAXOSMITHKLINE-A0516246A

PATIENT
  Age: 34 Year
  Sex: Male

DRUGS (4)
  1. WELLBUTRIN [Suspect]
     Indication: DEPRESSION
     Dosage: 300MG PER DAY
     Route: 048
  2. ADVAIR HFA [Concomitant]
  3. ALBUTEROL [Concomitant]
  4. SINGULAIR [Concomitant]

REACTIONS (2)
  - HAEMATURIA [None]
  - PAIN [None]
